FAERS Safety Report 9423112 (Version 4)
Quarter: 2013Q3

REPORT INFORMATION
  Report Type: Report from Study
  Country: AU (occurrence: AU)
  Receive Date: 20130726
  Receipt Date: 20130917
  Transmission Date: 20140515
  Serious: Yes (Other)
  Sender: FDA-Public Use
  Company Number: AU-AMGEN-AUSCT2013050878

PATIENT
  Age: 63 Year
  Sex: Female

DRUGS (5)
  1. DENOSUMAB [Suspect]
     Indication: BREAST CANCER
     Dosage: 120 MG, UNK
     Route: 058
     Dates: start: 20110601, end: 20120312
  2. ARIMIDEX [Concomitant]
     Dosage: UNK
     Dates: start: 201110
  3. CALTRATE [Concomitant]
     Dosage: UNK UNK, QD
     Dates: start: 20110601
  4. NUROFEN [Concomitant]
     Dosage: 400 MG, AS NECESSARY
     Dates: start: 20110719
  5. FISH OIL [Concomitant]
     Dosage: UNK
     Dates: start: 2010

REACTIONS (1)
  - Pain in jaw [Recovered/Resolved]
